FAERS Safety Report 16754723 (Version 1)
Quarter: 2019Q4

REPORT INFORMATION
  Report Type: Spontaneous
  Country: US (occurrence: US)
  Receive Date: 20190828
  Receipt Date: 20190828
  Transmission Date: 20200122
  Serious: Yes (Disabling)
  Sender: FDA-Public Use
  Company Number: None

PATIENT
  Age: 38 Year
  Sex: Male
  Weight: 97.65 kg

DRUGS (1)
  1. METHOCARBAMOL 750 MG TABS [Suspect]
     Active Substance: METHOCARBAMOL
     Indication: MUSCLE SPASMS
     Dosage: ?          QUANTITY:1 TABLET(S);?
     Route: 048

REACTIONS (7)
  - Hypersensitivity [None]
  - Disturbance in attention [None]
  - Visual impairment [None]
  - Somnolence [None]
  - Therapy non-responder [None]
  - Arrhythmia [None]
  - Memory impairment [None]

NARRATIVE: CASE EVENT DATE: 20190827
